FAERS Safety Report 11604959 (Version 1)
Quarter: 2015Q3

REPORT INFORMATION
  Report Type: Spontaneous
  Country: US (occurrence: US)
  Receive Date: 20150916
  Receipt Date: 20150916
  Transmission Date: 20151125
  Serious: No
  Sender: FDA-Public Use
  Company Number: US-ELI_LILLY_AND_COMPANY-US201404005406

PATIENT
  Age: 32 Year
  Sex: Male
  Weight: 77 kg

DRUGS (5)
  1. HUMALOG [Suspect]
     Active Substance: INSULIN LISPRO
     Dosage: 5.0 U, UNKNOWN NORMAL BOLUS
     Route: 058
  2. HUMALOG [Suspect]
     Active Substance: INSULIN LISPRO
     Dosage: 40 U, UNKNOWN LOW 40S
     Route: 058
     Dates: start: 201404
  3. HUMALOG [Suspect]
     Active Substance: INSULIN LISPRO
     Indication: PRODUCT USED FOR UNKNOWN INDICATION
     Dosage: 19.400 U, UNKNOWN BASAL RATE
     Route: 058
  4. HUMALOG [Suspect]
     Active Substance: INSULIN LISPRO
     Dosage: 40 U, UNKNOWN MID 40S
     Route: 058
     Dates: start: 201403
  5. HUMALOG [Suspect]
     Active Substance: INSULIN LISPRO
     Dosage: 30 U, UNKNOWN LOW TO MID 30
     Route: 058
     Dates: start: 201403

REACTIONS (1)
  - Blood glucose increased [Unknown]

NARRATIVE: CASE EVENT DATE: 20140405
